FAERS Safety Report 7784989-9 (Version None)
Quarter: 2011Q3

REPORT INFORMATION
  Report Type: 
  Country: None (occurrence: None)
  Receive Date: 20110928
  Receipt Date: 20110926
  Transmission Date: 20111222
  Serious: Yes (Death, Other)
  Sender: FDA-Public Use
  Company Number: PHEH2011US04686

PATIENT
  Sex: Female

DRUGS (5)
  1. VICODIN [Concomitant]
     Indication: PAIN
     Dosage: 5 MG, BID
     Route: 048
     Dates: start: 20110701, end: 20110901
  2. ZOLOFT [Concomitant]
     Indication: DEPRESSED MOOD
     Dosage: 50 MG, QD
     Route: 048
     Dates: end: 20110901
  3. GILENYA [Suspect]
     Indication: MULTIPLE SCLEROSIS
     Dosage: 0.5 MG, QD
     Route: 048
     Dates: start: 20110831
  4. NEURONTIN [Concomitant]
     Indication: TREMOR
     Dosage: 300 MG, TID
     Route: 048
     Dates: start: 20110701, end: 20110901
  5. XANAX [Concomitant]
     Indication: TREMOR
     Dosage: 2 MG, TID
     Route: 048
     Dates: start: 20110701, end: 20110901

REACTIONS (2)
  - DEATH [None]
  - ATRIOVENTRICULAR BLOCK SECOND DEGREE [None]
